FAERS Safety Report 4967164-2 (Version None)
Quarter: 2006Q2

REPORT INFORMATION
  Report Type: 
  Country: None (occurrence: None)
  Receive Date: 20060403
  Receipt Date: 20060323
  Transmission Date: 20061013
  Serious: Yes (Other)
  Sender: FDA-Public Use
  Company Number: 2006035528

PATIENT
  Age: 67 Year
  Sex: Female
  Weight: 86.1834 kg

DRUGS (10)
  1. TIKOSYN [Suspect]
     Indication: ATRIAL FIBRILLATION
     Dosage: 1000 MCG (500 MCG, BID, INTERVAL: EVERY DAY), ORAL
     Route: 048
     Dates: start: 20051103
  2. ZEBETA [Suspect]
     Indication: HEART RATE INCREASED
  3. MULTIVITAMIN [Concomitant]
  4. PREVACID [Concomitant]
  5. LASIX [Concomitant]
  6. POTASSIUM (POTASSIUM) [Concomitant]
  7. PRAVACHOL [Concomitant]
  8. ZETIA [Concomitant]
  9. COENZYME Q10 [Concomitant]
  10. CHONDROITIN (GLUCOSAMINE (CHONDROITIN, GLUCOSAMINE) [Concomitant]

REACTIONS (4)
  - ATRIAL FIBRILLATION [None]
  - ELECTROCARDIOGRAM T WAVE ABNORMAL [None]
  - HEART RATE INCREASED [None]
  - PHARMACEUTICAL PRODUCT COMPLAINT [None]
